FAERS Safety Report 8069663-6 (Version None)
Quarter: 2012Q1

REPORT INFORMATION
  Report Type: 
  Country: None (occurrence: None)
  Receive Date: 20120125
  Receipt Date: 20120120
  Transmission Date: 20120608
  Serious: Yes (Other)
  Sender: FDA-Public Use
  Company Number: JP-PFIZER INC-2012017399

PATIENT
  Sex: Female

DRUGS (4)
  1. LASIX [Concomitant]
     Dosage: UNK
  2. CARVEDILOL [Suspect]
     Dosage: UNK
  3. NORVASC [Suspect]
     Dosage: UNK
  4. OLMESARTAN MEDOXOMIL [Concomitant]
     Dosage: UNK

REACTIONS (3)
  - SHOCK [None]
  - PNEUMONIA [None]
  - TACHYCARDIA [None]
